FAERS Safety Report 12129979 (Version 1)
Quarter: 2016Q1

REPORT INFORMATION
  Report Type: Spontaneous
  Country: US (occurrence: US)
  Receive Date: 20160229
  Receipt Date: 20160229
  Transmission Date: 20160526
  Serious: No
  Sender: FDA-Public Use
  Company Number: US-ACORDA-ACO_23092_2010

PATIENT
  Age: 64 Year
  Sex: Male
  Weight: 67 kg

DRUGS (9)
  1. LISINOPRIL/HCTZ [Concomitant]
     Active Substance: HYDROCHLOROTHIAZIDE\LISINOPRIL
     Dosage: 10/12.5 MG
     Dates: start: 2003
  2. PRAVASTATIN [Concomitant]
     Active Substance: PRAVASTATIN\PRAVASTATIN SODIUM
     Dosage: DF
     Dates: start: 2006
  3. AVONEX [Concomitant]
     Active Substance: INTERFERON BETA-1A
     Dosage: DF
     Dates: start: 1998
  4. PROVIGIL [Concomitant]
     Active Substance: MODAFINIL
     Dosage: DF
     Dates: start: 2007
  5. NIASPAN EXTENDED RELEASE [Concomitant]
     Dosage: DF
     Dates: start: 2008
  6. AMPYRA [Suspect]
     Active Substance: DALFAMPRIDINE
     Indication: MULTIPLE SCLEROSIS
     Dosage: 10 MG, BID
     Route: 048
     Dates: start: 20100429, end: 20100626
  7. ALLEGRA [Concomitant]
     Active Substance: FEXOFENADINE HYDROCHLORIDE
     Dosage: DF
  8. CLONIDINE. [Concomitant]
     Active Substance: CLONIDINE
     Dosage: DF
     Dates: start: 2003
  9. FLOMAX [Concomitant]
     Active Substance: TAMSULOSIN HYDROCHLORIDE
     Dosage: DF
     Dates: start: 2006

REACTIONS (8)
  - Drug ineffective [Unknown]
  - Drug intolerance [Unknown]
  - Dizziness [Not Recovered/Not Resolved]
  - Condition aggravated [Unknown]
  - Drug effect decreased [Unknown]
  - Product quality issue [Unknown]
  - Upper respiratory tract infection [Recovered/Resolved]
  - Multiple sclerosis [Unknown]

NARRATIVE: CASE EVENT DATE: 2010
